FAERS Safety Report 8873900 (Version 2)
Quarter: 2013Q1

REPORT INFORMATION
  Report Type: Spontaneous
  Country: BR (occurrence: BR)
  Receive Date: 20121030
  Receipt Date: 20130314
  Transmission Date: 20140127
  Serious: Yes (Other)
  Sender: FDA-Public Use
  Company Number: PHHY2012BR097479

PATIENT
  Sex: Female
  Weight: 54 kg

DRUGS (2)
  1. DIOVAN HCT [Suspect]
     Indication: BLOOD PRESSURE
     Dosage: 1 DF (160 MG VALS/12.5 MG HYDRO) DAILY
     Route: 048
     Dates: start: 201107
  2. OSTEOFORM//ALENDRONATE SODIUM [Concomitant]
     Indication: BONE DISORDER
     Dosage: 1 DF, QW
     Route: 048

REACTIONS (1)
  - Breast mass [Not Recovered/Not Resolved]
